FAERS Safety Report 19824248 (Version 2)
Quarter: 2021Q3

REPORT INFORMATION
  Report Type: Spontaneous
  Country: US (occurrence: US)
  Receive Date: 20210913
  Receipt Date: 20210924
  Transmission Date: 20211014
  Serious: Yes (Other)
  Sender: FDA-Public Use
  Company Number: US-JAZZ-2021-US-016646

PATIENT
  Age: 53 Year
  Sex: Female

DRUGS (5)
  1. SUNOSI [Suspect]
     Active Substance: SOLRIAMFETOL
     Indication: SLEEP APNOEA SYNDROME
  2. SUNOSI [Suspect]
     Active Substance: SOLRIAMFETOL
     Indication: HYPERSOMNIA
     Dosage: 150 MILLIGRAM
     Route: 048
     Dates: start: 202106
  3. LITHIUM. [Concomitant]
     Active Substance: LITHIUM
     Dosage: 1500 MILLIGRAM
  4. LEXAPRO [Concomitant]
     Active Substance: ESCITALOPRAM OXALATE
     Dosage: 20 MILLIGRAM
  5. LEVOTHYROXINE. [Concomitant]
     Active Substance: LEVOTHYROXINE
     Dosage: 25 MILLIGRAM

REACTIONS (7)
  - Wrong technique in product usage process [Unknown]
  - Therapeutic product effect incomplete [Recovered/Resolved]
  - Agitation [Unknown]
  - Depression suicidal [Not Recovered/Not Resolved]
  - Heart rate increased [Unknown]
  - Mania [Unknown]
  - Headache [Unknown]

NARRATIVE: CASE EVENT DATE: 2021
